FAERS Safety Report 14666901 (Version 2)
Quarter: 2018Q2

REPORT INFORMATION
  Report Type: Spontaneous
  Country: US (occurrence: US)
  Receive Date: 20180322
  Receipt Date: 20180412
  Transmission Date: 20180711
  Serious: Yes (Life-Threatening, Other)
  Sender: FDA-Public Use
  Company Number: US-AMGEN-USASP2018037510

PATIENT
  Age: 47 Year
  Sex: Male

DRUGS (4)
  1. THALIDOMIDE [Concomitant]
     Active Substance: THALIDOMIDE
     Indication: THROMBOCYTOPENIA
  2. ROMIPLOSTIM [Suspect]
     Active Substance: ROMIPLOSTIM
     Indication: THROMBOCYTOPENIA
     Route: 065
  3. RITUXIMAB. [Concomitant]
     Active Substance: RITUXIMAB
     Indication: THROMBOCYTOPENIA
  4. CYCLOPHOSPHAMIDE. [Concomitant]
     Active Substance: CYCLOPHOSPHAMIDE
     Indication: THROMBOCYTOPENIA

REACTIONS (2)
  - Anaemia [Recovered/Resolved]
  - Off label use [Unknown]
